FAERS Safety Report 10349671 (Version 1)
Quarter: 2014Q3

REPORT INFORMATION
  Report Type: Spontaneous
  Country: GB (occurrence: None)
  Receive Date: 20140728
  Receipt Date: 20140728
  Transmission Date: 20150326
  Serious: Yes (Other)
  Sender: FDA-Public Use
  Company Number: FK201402899

PATIENT
  Age: 27 Year
  Sex: Female

DRUGS (5)
  1. ROTIGOTINE (ROTIGOTINE) [Concomitant]
  2. ALL OTHER THERAPEUTIC PRODUCTS (ALL OTHER THERAPEUTIC PRODUCTS) [Concomitant]
  3. CREON [Suspect]
     Active Substance: PANCRELIPASE AMYLASE\PANCRELIPASE LIPASE\PANCRELIPASE PROTEASE
     Indication: PANCREATIC INSUFFICIENCY
     Dates: start: 201402
  4. SODIUM BICARBONATE. [Suspect]
     Active Substance: SODIUM BICARBONATE
     Indication: PRODUCT USED FOR UNKNOWN INDICATION
     Route: 042
     Dates: start: 2014
  5. TACROLIMUS (TACROLIMUS) [Concomitant]
     Active Substance: TACROLIMUS

REACTIONS (4)
  - Blood bicarbonate increased [None]
  - Blood sodium increased [None]
  - Incorrect route of drug administration [None]
  - Wrong technique in drug usage process [None]
